FAERS Safety Report 8234748-8 (Version None)
Quarter: 2012Q1

REPORT INFORMATION
  Report Type: 
  Country: None (occurrence: None)
  Receive Date: 20120321
  Receipt Date: 20120305
  Transmission Date: 20120608
  Serious: Yes (Hospitalization)
  Sender: FDA-Public Use
  Company Number: DSA_55620_2012

PATIENT
  Age: 82 Year
  Sex: Female

DRUGS (9)
  1. POLYETHYLENE GLYCOL [Suspect]
     Indication: PRODUCT USED FOR UNKNOWN INDICATION
     Dosage: DF ORAL
     Route: 048
     Dates: end: 20111207
  2. VALPROMIDE (DEPAMIOE-VALPROMIDE) [Suspect]
     Indication: PRODUCT USED FOR UNKNOWN INDICATION
     Dosage: 500 MG BID ORAL
     Route: 048
     Dates: end: 20111207
  3. ENALAPRIL MALEATE AND HYDROCHLOROTHIAZIDE [Suspect]
     Indication: HYPERTENSION
     Dosage: 20 MG-12.5 MG DAILY ORAL
     Route: 048
     Dates: end: 20111207
  4. MIRTAZAPINE [Suspect]
     Indication: PRODUCT USED FOR UNKNOWN INDICATION
     Dosage: 15 MG QD ORAL
     Route: 048
     Dates: end: 20111207
  5. URBANYL [Concomitant]
  6. ESOMEPRAZOLE MAGNESIUM [Suspect]
     Indication: PRODUCT USED FOR UNKNOWN INDICATION
     Dosage: 20 MG QD ORAL
     Route: 048
     Dates: end: 20111207
  7. MODOPAR (MODOPAR-BENSERAZIDE HYDROCHLORIDE (+) LEVODOPA) (NOT SPECIFIE [Suspect]
     Indication: PRODUCT USED FOR UNKNOWN INDICATION
     Dosage: 100 MG/125 MG, ONE TAB THREE TIMES DAILY ORAL
     Route: 048
  8. TRAMADOL HYDROCHLORIDE [Suspect]
     Indication: PRODUCT USED FOR UNKNOWN INDICATION
     Dosage: DF ORAL
     Route: 048
     Dates: end: 20111206
  9. DOMPERIDONE (DOMPERIDONE) [Suspect]
     Indication: PRODUCT USED FOR UNKNOWN INDICATION
     Dosage: DF ORAL
     Route: 048

REACTIONS (8)
  - DISORIENTATION [None]
  - FALL [None]
  - ASTHENIA [None]
  - VOMITING [None]
  - DIARRHOEA [None]
  - BURNS SECOND DEGREE [None]
  - HYPONATRAEMIA [None]
  - RHABDOMYOLYSIS [None]
